FAERS Safety Report 15675822 (Version 1)
Quarter: 2018Q4

REPORT INFORMATION
  Report Type: Spontaneous
  Country: US (occurrence: US)
  Receive Date: 20181129
  Receipt Date: 20181129
  Transmission Date: 20190205
  Serious: Yes (Hospitalization)
  Sender: FDA-Public Use
  Company Number: None

PATIENT
  Age: 68 Year
  Sex: Female

DRUGS (6)
  1. MULTI-VITAMN [Concomitant]
  2. FORTEO [Suspect]
     Active Substance: TERIPARATIDE
     Indication: SENILE OSTEOPOROSIS
     Route: 058
     Dates: start: 20171027
  3. PREVACID 30MG [Concomitant]
  4. VITAMIN D3 [Concomitant]
     Active Substance: CHOLECALCIFEROL
  5. IRON 27MG [Concomitant]
  6. POT CL 20MEQ [Concomitant]

REACTIONS (1)
  - Subcutaneous abscess [None]

NARRATIVE: CASE EVENT DATE: 20181128
